FAERS Safety Report 5119280-2 (Version None)
Quarter: 2006Q3

REPORT INFORMATION
  Report Type: 
  Country: None (occurrence: None)
  Receive Date: 20060928
  Receipt Date: 20060918
  Transmission Date: 20061208
  Serious: Yes (Hospitalization)
  Sender: FDA-Public Use
  Company Number: 2006P1000408

PATIENT
  Age: 58 Year
  Sex: Male
  Weight: 92 kg

DRUGS (5)
  1. RETEPLASE(RETEPLASE) [Suspect]
     Indication: MYOCARDIAL INFARCTION
     Dosage: SEE IMAGE
     Route: 042
     Dates: start: 20051225
  2. RETEPLASE(RETEPLASE) [Suspect]
     Indication: MYOCARDIAL INFARCTION
     Dosage: SEE IMAGE
     Route: 042
     Dates: start: 20051225
  3. REOPRO [Suspect]
     Indication: ACUTE MYOCARDIAL INFARCTION
     Dosage: SEE IMAGE
     Route: 042
     Dates: start: 20051225, end: 20051225
  4. REOPRO [Suspect]
     Indication: ACUTE MYOCARDIAL INFARCTION
     Dosage: SEE IMAGE
     Route: 042
     Dates: start: 20051225, end: 20051225
  5. HEPARIN [Concomitant]

REACTIONS (2)
  - ANGINA UNSTABLE [None]
  - INTRACARDIAC THROMBUS [None]
